FAERS Safety Report 9992003 (Version 3)
Quarter: 2014Q4

REPORT INFORMATION
  Report Type: Spontaneous
  Country: US (occurrence: US)
  Receive Date: 20140310
  Receipt Date: 20141029
  Transmission Date: 20150529
  Serious: Yes (Hospitalization, Other)
  Sender: FDA-Public Use
  Company Number: US-ASTELLAS-2014US000626

PATIENT
  Sex: Male

DRUGS (1)
  1. XTANDI [Suspect]
     Active Substance: ENZALUTAMIDE
     Indication: PRODUCT USED FOR UNKNOWN INDICATION
     Route: 048
     Dates: start: 201308

REACTIONS (5)
  - Diffuse large B-cell lymphoma [Unknown]
  - Abdominal pain [Unknown]
  - Weight decreased [Recovering/Resolving]
  - Flank pain [Unknown]
  - Decreased appetite [Unknown]
